FAERS Safety Report 14477205 (Version 2)
Quarter: 2018Q3

REPORT INFORMATION
  Report Type: Report from Study
  Country: US (occurrence: US)
  Receive Date: 20180201
  Receipt Date: 20180723
  Transmission Date: 20181010
  Serious: No
  Sender: FDA-Public Use
  Company Number: US-EXELIXIS-CABO-17011222

PATIENT
  Sex: Female

DRUGS (8)
  1. VITAMIN D [Concomitant]
     Active Substance: CHOLECALCIFEROL
  2. VALSARTAN. [Concomitant]
     Active Substance: VALSARTAN
  3. ALOE VERA [Concomitant]
     Active Substance: ALOE VERA LEAF
  4. GAVILYTE G [Concomitant]
     Active Substance: POLYETHYLENE GLYCOL 3350\POTASSIUM CHLORIDE\SODIUM BICARBONATE\SODIUM CHLORIDE\SODIUM SULFATE ANHYDROUS
  5. HYDROCODONE [Concomitant]
     Active Substance: HYDROCODONE
  6. CABOMETYX [Suspect]
     Active Substance: CABOZANTINIB S-MALATE
     Indication: RENAL CANCER
     Dosage: 60 MG, QD
     Route: 048
     Dates: start: 20171013
  7. ATENOLOL. [Concomitant]
     Active Substance: ATENOLOL
  8. ATENOLOL. [Concomitant]
     Active Substance: ATENOLOL

REACTIONS (8)
  - Fatigue [Unknown]
  - Upper respiratory tract infection [Unknown]
  - Rash papular [Not Recovered/Not Resolved]
  - Blister [Unknown]
  - Tooth infection [Unknown]
  - Pruritus [Not Recovered/Not Resolved]
  - Dry throat [Unknown]
  - Dysphonia [Unknown]
